FAERS Safety Report 5287005-6 (Version None)
Quarter: 2007Q2

REPORT INFORMATION
  Report Type: 
  Country: None (occurrence: None)
  Receive Date: 20070404
  Receipt Date: 20061019
  Transmission Date: 20071010
  Serious: Yes (Other)
  Sender: FDA-Public Use
  Company Number: US-PFIZER INC-2007021061

PATIENT
  Sex: Male

DRUGS (1)
  1. ZOLOFT [Suspect]
     Indication: POST-TRAUMATIC STRESS DISORDER
     Dosage: DAILY DOSE:75MG

REACTIONS (4)
  - ANXIETY [None]
  - BRUXISM [None]
  - POST-TRAUMATIC STRESS DISORDER [None]
  - TOOTH FRACTURE [None]
